FAERS Safety Report 24549134 (Version 2)
Quarter: 2024Q4

REPORT INFORMATION
  Report Type: Spontaneous
  Country: US (occurrence: US)
  Receive Date: 20241025
  Receipt Date: 20241029
  Transmission Date: 20250115
  Serious: Yes (Other)
  Sender: PFIZER
  Company Number: US-MLMSERVICE-20241017-PI228625-00218-1

PATIENT
  Age: 60 Year
  Sex: Female

DRUGS (1)
  1. METHOTREXATE SODIUM [Suspect]
     Active Substance: METHOTREXATE SODIUM
     Indication: Proliferative vitreoretinopathy
     Dosage: FIVE INTRAVITREAL METHOTREXATE INJECTIONS (400 MCG/0.1ML) POSTOPERATIVELY OVER A TWO-MONTH PERIOD
     Route: 031

REACTIONS (3)
  - Intra-ocular injection complication [Recovered/Resolved]
  - Off label use [Unknown]
  - Off label use [Unknown]
